FAERS Safety Report 7710390-X (Version None)
Quarter: 2011Q3

REPORT INFORMATION
  Report Type: 
  Country: None (occurrence: None)
  Receive Date: 20110825
  Receipt Date: 20110812
  Transmission Date: 20111222
  Serious: Yes (Other)
  Sender: FDA-Public Use
  Company Number: CA-ELI_LILLY_AND_COMPANY-CA201108004594

PATIENT
  Age: 65 Year
  Sex: Female

DRUGS (15)
  1. FORTEO [Suspect]
     Indication: OSTEOPOROSIS
     Dosage: 20 UG, QD
     Route: 058
     Dates: start: 20110421
  2. VITAMIN D [Concomitant]
  3. VITAMIN E [Concomitant]
  4. CALCIUM CARBONATE [Concomitant]
     Dosage: 1500 MG, QD
  5. MULTI-VITAMINS [Concomitant]
  6. VITAMIN B COMPLEX CAP [Concomitant]
  7. ASCORBIC ACID [Concomitant]
  8. ZINC [Concomitant]
  9. STRONTIUM [Concomitant]
  10. ANTIOXIDANT                        /02147801/ [Concomitant]
  11. PROGESTIN INJ [Concomitant]
  12. SYNTHROID [Concomitant]
  13. LEVOTHYROXINE SODIUM [Concomitant]
     Dosage: UNK, QD
  14. SELENIUM [Concomitant]
  15. ATIVAN [Concomitant]
     Dosage: UNK, EACH EVENING

REACTIONS (5)
  - MOVEMENT DISORDER [None]
  - CONDITION AGGRAVATED [None]
  - BACK PAIN [None]
  - SPINAL CORD PARALYSIS [None]
  - SPINAL COMPRESSION FRACTURE [None]
